FAERS Safety Report 16040627 (Version 1)
Quarter: 2019Q1

REPORT INFORMATION
  Report Type: Spontaneous
  Country: US (occurrence: US)
  Receive Date: 20190306
  Receipt Date: 20190306
  Transmission Date: 20190418
  Serious: No
  Sender: FDA-Public Use
  Company Number: US-BAUSCH-BL-2018-013979

PATIENT
  Age: 75 Year
  Sex: Female
  Weight: 61.29 kg

DRUGS (13)
  1. UCERIS [Suspect]
     Active Substance: BUDESONIDE
     Indication: COLITIS
     Dosage: USED FOR ONE MONTH
     Route: 048
     Dates: start: 2017, end: 2017
  2. UCERIS [Suspect]
     Active Substance: BUDESONIDE
     Indication: IMPAIRED GASTRIC EMPTYING
     Dosage: 2ND ROUND OF SAMPLE (4 TO 5 MONTHS LATER)
     Route: 048
  3. METOPROLOL. [Concomitant]
     Active Substance: METOPROLOL
     Indication: PRODUCT USED FOR UNKNOWN INDICATION
  4. LEVOTHYROXINE. [Concomitant]
     Active Substance: LEVOTHYROXINE
     Indication: PRODUCT USED FOR UNKNOWN INDICATION
  5. UCERIS [Suspect]
     Active Substance: BUDESONIDE
     Indication: DIVERTICULUM
     Dosage: SOMETIME LAST WEEK
     Route: 048
     Dates: start: 20180506
  6. APRISO [Suspect]
     Active Substance: MESALAMINE
     Indication: DIVERTICULUM
     Route: 048
     Dates: start: 20180506
  7. APRISO [Suspect]
     Active Substance: MESALAMINE
     Indication: IMPAIRED GASTRIC EMPTYING
     Dosage: 2ND ROUND OF SAMPLE (4 TO 5 MONTHS LATER)
     Route: 048
  8. ESCITALOPRAM [Concomitant]
     Active Substance: ESCITALOPRAM OXALATE
     Indication: PRODUCT USED FOR UNKNOWN INDICATION
  9. VITAMIN D [Concomitant]
     Active Substance: CHOLECALCIFEROL
     Indication: PRODUCT USED FOR UNKNOWN INDICATION
  10. APRISO [Suspect]
     Active Substance: MESALAMINE
     Indication: COLITIS
     Dosage: USED FOR ONE MONTH
     Route: 048
     Dates: start: 2017, end: 2017
  11. LISINOPRIL. [Concomitant]
     Active Substance: LISINOPRIL
     Indication: PRODUCT USED FOR UNKNOWN INDICATION
  12. PRAVASTATIN. [Concomitant]
     Active Substance: PRAVASTATIN
     Indication: PRODUCT USED FOR UNKNOWN INDICATION
  13. CALCIUM [Concomitant]
     Active Substance: CALCIUM
     Indication: PRODUCT USED FOR UNKNOWN INDICATION

REACTIONS (4)
  - Pruritus [Recovered/Resolved]
  - Pigmentation disorder [Recovered/Resolved]
  - Rash [Not Recovered/Not Resolved]
  - Off label use [Not Recovered/Not Resolved]

NARRATIVE: CASE EVENT DATE: 2017
